FAERS Safety Report 25832910 (Version 2)
Quarter: 2025Q3

REPORT INFORMATION
  Report Type: Spontaneous
  Country: CN (occurrence: CN)
  Receive Date: 20250922
  Receipt Date: 20250925
  Transmission Date: 20251020
  Serious: No
  Sender: ARGENX BVBA
  Company Number: CN-ARGENX-2025-ARGX-CN012697

PATIENT

DRUGS (18)
  1. VYVGART [Suspect]
     Active Substance: EFGARTIGIMOD ALFA-FCAB
     Indication: Myasthenia gravis
     Dosage: 800 MG/D
     Route: 065
     Dates: start: 20240320
  2. VYVGART [Suspect]
     Active Substance: EFGARTIGIMOD ALFA-FCAB
     Indication: Anti-GAD antibody
  3. Immunoglobulin [Concomitant]
     Indication: Myasthenia gravis
     Route: 042
     Dates: start: 20240223, end: 20240227
  4. METHYLPREDNISOLONE [Concomitant]
     Active Substance: METHYLPREDNISOLONE
     Dosage: 125 MG, DAILY FOR 3 DAYS
     Route: 042
     Dates: start: 20240330
  5. METHYLPREDNISOLONE [Concomitant]
     Active Substance: METHYLPREDNISOLONE
     Dosage: 250 MG, DAILY FOR 3 DAYS
     Route: 042
     Dates: start: 20240327
  6. METHYLPREDNISOLONE [Concomitant]
     Active Substance: METHYLPREDNISOLONE
     Dosage: 500 MG, DAILY FOR 5 DAYS
     Route: 042
     Dates: start: 20240322
  7. METHYLPREDNISOLONE [Concomitant]
     Active Substance: METHYLPREDNISOLONE
     Dosage: 8 MG, DAILY FOR 3 DAYS
     Route: 042
     Dates: start: 20240402
  8. METHYLPREDNISOLONE [Concomitant]
     Active Substance: METHYLPREDNISOLONE
     Indication: Myasthenia gravis
     Dosage: 80 MG, DAILY
     Route: 042
     Dates: start: 20240220
  9. PREDNISONE [Concomitant]
     Active Substance: PREDNISONE
     Dosage: 20 MG, DAILY
     Route: 065
  10. PREDNISONE [Concomitant]
     Active Substance: PREDNISONE
     Dosage: 40 MG, DAILY
     Route: 065
     Dates: start: 20240405
  11. PREDNISONE [Concomitant]
     Active Substance: PREDNISONE
     Dosage: 5 MG, DAILY AS A MAINTENANCE DOSE
     Route: 065
  12. PREDNISONE [Concomitant]
     Active Substance: PREDNISONE
     Dosage: 55 MG, DAILY
     Route: 065
  13. PREDNISONE [Concomitant]
     Active Substance: PREDNISONE
     Indication: Myasthenia gravis
     Dosage: 60 MG, DAILY
     Route: 065
     Dates: start: 20240223
  14. PYRIDOSTIGMINE BROMIDE [Concomitant]
     Active Substance: PYRIDOSTIGMINE BROMIDE
     Indication: Product used for unknown indication
     Dosage: 120 MG, TID
     Route: 065
     Dates: start: 202112, end: 20240716
  15. PYRIDOSTIGMINE BROMIDE [Concomitant]
     Active Substance: PYRIDOSTIGMINE BROMIDE
     Dosage: 60 MG, BID
     Route: 065
     Dates: start: 20240807
  16. PYRIDOSTIGMINE BROMIDE [Concomitant]
     Active Substance: PYRIDOSTIGMINE BROMIDE
     Dosage: 60 MG, TID
     Route: 065
     Dates: start: 20240717, end: 20240806
  17. TACROLIMUS [Concomitant]
     Active Substance: TACROLIMUS
     Indication: Myasthenia gravis
     Dosage: 2 MG, DAILY
     Route: 065
     Dates: start: 20250220
  18. TACROLIMUS [Concomitant]
     Active Substance: TACROLIMUS
     Dosage: 4 MG, DAILY
     Route: 065

REACTIONS (1)
  - Off label use [Unknown]

NARRATIVE: CASE EVENT DATE: 20240320
